FAERS Safety Report 7003010-3 (Version None)
Quarter: 2010Q3

REPORT INFORMATION
  Report Type: 
  Country: None (occurrence: None)
  Receive Date: 20100920
  Receipt Date: 20100409
  Transmission Date: 20110219
  Serious: Yes (Hospitalization)
  Sender: FDA-Public Use
  Company Number: US-ASTRAZENECA-2009SE21435

PATIENT
  Age: 28 Year
  Sex: Female

DRUGS (7)
  1. SEROQUEL [Suspect]
     Dosage: 50-200 MG
     Route: 048
     Dates: start: 20060809, end: 20071107
  2. ABILIFY [Concomitant]
     Dates: start: 20080101
  3. GEODON [Concomitant]
     Dates: start: 20080101
  4. HALDOL [Concomitant]
     Dates: start: 20090101
  5. THORAZINE [Concomitant]
     Dates: start: 20070101
  6. TRILAFON [Concomitant]
     Dates: start: 20100101
  7. ZOLOFT [Concomitant]
     Dates: start: 20070101

REACTIONS (7)
  - ADVERSE DRUG REACTION [None]
  - BLOOD CHOLESTEROL INCREASED [None]
  - HYPERGLYCAEMIA [None]
  - HYPERLIPIDAEMIA [None]
  - OBESITY [None]
  - SUICIDE ATTEMPT [None]
  - TYPE 2 DIABETES MELLITUS [None]
